FAERS Safety Report 9109313 (Version 1)
Quarter: 2013Q1

REPORT INFORMATION
  Report Type: Spontaneous
  Country: GB (occurrence: GB)
  Receive Date: 20130222
  Receipt Date: 20130222
  Transmission Date: 20140127
  Serious: Yes (Hospitalization, Other)
  Sender: FDA-Public Use
  Company Number: PHFR2013GB000844

PATIENT
  Age: 28 None
  Sex: Male
  Weight: 71 kg

DRUGS (8)
  1. CLOZARIL [Suspect]
     Indication: SCHIZOPHRENIA
     Dosage: UNK UKN, UNK
     Route: 048
     Dates: start: 20090430
  2. CLOZARIL [Suspect]
     Dosage: 625 MG, UNK
  3. CLOZARIL [Suspect]
     Dosage: 450 MG, UNK
  4. CLOZARIL [Suspect]
     Dosage: 500 MG, QD
     Route: 048
  5. FLUOXETIN [Concomitant]
     Indication: OBSESSIVE-COMPULSIVE DISORDER
     Dosage: 20 MG
     Route: 048
     Dates: start: 20130115, end: 20130125
  6. LAMOTRIGINE [Concomitant]
     Indication: CONVULSION
     Dosage: 100 MG, UNK
     Route: 048
     Dates: start: 20121212
  7. IPRATROPIUM BROMIDE [Concomitant]
     Indication: SALIVARY HYPERSECRETION
     Dosage: 2 SPRAY
     Route: 048
     Dates: start: 20121212
  8. ADCAL D3 [Concomitant]
     Dosage: 2 TABS
     Route: 048

REACTIONS (4)
  - Fall [Unknown]
  - Grand mal convulsion [Recovered/Resolved]
  - Myoclonus [Recovered/Resolved]
  - Antipsychotic drug level decreased [Unknown]
